FAERS Safety Report 8957831 (Version 1)
Quarter: 2012Q4

REPORT INFORMATION
  Report Type: 
  Country: US (occurrence: US)
  Receive Date: 20121210
  Receipt Date: 20121210
  Transmission Date: 20130627
  Serious: Yes (Life-Threatening)
  Sender: FDA-Public Use
  Company Number: US-PFIZER INC-2012306529

PATIENT
  Age: 6 Year
  Sex: Male

DRUGS (4)
  1. CISPLATIN [Suspect]
     Indication: MEDULLOBLASTOMA
  2. CYCLOPHOSPHAMIDE [Suspect]
     Indication: MEDULLOBLASTOMA
  3. LOMUSTINE [Suspect]
     Indication: MEDULLOBLASTOMA
  4. VINCRISTINE [Suspect]
     Indication: MEDULLOBLASTOMA

REACTIONS (1)
  - Venoocclusive liver disease [Recovered/Resolved]
